FAERS Safety Report 24751517 (Version 1)
Quarter: 2024Q4

REPORT INFORMATION
  Report Type: Spontaneous
  Country: US (occurrence: US)
  Receive Date: 20241219
  Receipt Date: 20241219
  Transmission Date: 20250115
  Serious: Yes (Other)
  Sender: PACIRA
  Company Number: US-ORG100016242-2024000315

PATIENT
  Age: 69 Year
  Sex: Male
  Weight: 97.5 kg

DRUGS (2)
  1. EXPAREL [Suspect]
     Active Substance: BUPIVACAINE
     Indication: Product used for unknown indication
     Route: 065
     Dates: start: 20230426, end: 20230426
  2. BUPIVACAINE [Suspect]
     Active Substance: BUPIVACAINE
     Indication: Product used for unknown indication
     Route: 065
     Dates: start: 20230426, end: 20230426

REACTIONS (1)
  - Diaphragmatic paralysis [Not Recovered/Not Resolved]

NARRATIVE: CASE EVENT DATE: 20230426
